FAERS Safety Report 8496543-4 (Version None)
Quarter: 2012Q3

REPORT INFORMATION
  Report Type: 
  Country: None (occurrence: None)
  Receive Date: 20120709
  Receipt Date: 20120627
  Transmission Date: 20120928
  Serious: Yes (Hospitalization)
  Sender: FDA-Public Use
  Company Number: DE-ELI_LILLY_AND_COMPANY-DE201206009633

PATIENT
  Sex: Male

DRUGS (10)
  1. OPIUM/NALOXONE TAB [Concomitant]
  2. DICLOFENAC SODIUM [Concomitant]
     Dosage: UNK, PRN
  3. PANTOPRAZOLE [Concomitant]
  4. HUMALOG [Suspect]
     Indication: DIABETES MELLITUS
     Dosage: UNK, PRN
     Route: 058
  5. SEROQUEL [Concomitant]
  6. TALCID [Concomitant]
     Dosage: UNK, PRN
  7. LEVEMIR [Concomitant]
  8. DIPYRONE TAB [Concomitant]
  9. CYMBALTA [Concomitant]
  10. METOCLOPRAMIDE [Concomitant]

REACTIONS (5)
  - VOMITING [None]
  - INTERVERTEBRAL DISC PROTRUSION [None]
  - NAUSEA [None]
  - PELVIC FRACTURE [None]
  - BLOOD GLUCOSE INCREASED [None]
